FAERS Safety Report 19176994 (Version 2)
Quarter: 2021Q2

REPORT INFORMATION
  Report Type: Report from Study
  Country: US (occurrence: US)
  Receive Date: 20210424
  Receipt Date: 20210506
  Transmission Date: 20210717
  Serious: Yes (Other)
  Sender: FDA-Public Use
  Company Number: NVSC2021US085152

PATIENT
  Sex: Male

DRUGS (1)
  1. ENTRESTO [Suspect]
     Active Substance: SACUBITRIL\VALSARTAN
     Indication: PRODUCT USED FOR UNKNOWN INDICATION
     Dosage: UNK
     Route: 048
     Dates: start: 202103

REACTIONS (6)
  - Pericarditis [Unknown]
  - Nocturia [Unknown]
  - Dyspnoea [Unknown]
  - Fluid retention [Unknown]
  - Chest discomfort [Unknown]
  - Abdominal distension [Unknown]
